FAERS Safety Report 6159672-6 (Version None)
Quarter: 2009Q2

REPORT INFORMATION
  Report Type: 
  Country: None (occurrence: None)
  Receive Date: 20090415
  Receipt Date: 20090406
  Transmission Date: 20091009
  Serious: Yes (Other)
  Sender: FDA-Public Use
  Company Number: CAP09000088

PATIENT
  Age: 90 Year
  Sex: Female

DRUGS (3)
  1. ACTONEL [Suspect]
     Indication: OSTEOPOROSIS
     Dosage: 35 MG ONCE WEEKLY, ORAL
     Route: 048
     Dates: start: 20040901
  2. MONOPRIL [Concomitant]
  3. ASPIRIN [Concomitant]

REACTIONS (2)
  - RENAL CANCER [None]
  - URINARY TRACT INFECTION [None]
